FAERS Safety Report 7383547-8 (Version None)
Quarter: 2011Q1

REPORT INFORMATION
  Report Type: 
  Country: None (occurrence: None)
  Receive Date: 20110324
  Receipt Date: 20110324
  Transmission Date: 20110831
  Serious: Yes (Life-Threatening)
  Sender: FDA-Public Use
  Company Number: None

PATIENT
  Age: 44 Year
  Sex: Male
  Weight: 62 kg

DRUGS (9)
  1. HALOPERIDOL [Suspect]
     Indication: MANIA
     Dosage: 5MG BID PRN IV BOLUS
     Route: 040
     Dates: start: 20101229, end: 20110102
  2. DARUNAVIR [Concomitant]
  3. OLANZAPINE [Suspect]
     Indication: MANIA
     Dosage: 5MG BID PO
     Route: 048
     Dates: start: 20101231, end: 20110102
  4. LAMIVUDINE [Concomitant]
  5. LORAZEPAM [Concomitant]
  6. RITONAVIR [Concomitant]
  7. PREDNISONE [Concomitant]
  8. HEPARIN [Concomitant]
  9. FAMOTIDINE [Concomitant]

REACTIONS (2)
  - VENTRICULAR TACHYCARDIA [None]
  - TORSADE DE POINTES [None]
